FAERS Safety Report 15986946 (Version 2)
Quarter: 2019Q1

REPORT INFORMATION
  Report Type: Report from Study
  Country: JP (occurrence: JP)
  Receive Date: 20190220
  Receipt Date: 20190306
  Transmission Date: 20190418
  Serious: Yes (Death, Other)
  Sender: FDA-Public Use
  Company Number: JP-009507513-1902JPN001159J

PATIENT
  Age: 63 Year
  Sex: Male
  Weight: 43 kg

DRUGS (3)
  1. KEYTRUDA [Suspect]
     Active Substance: PEMBROLIZUMAB
     Dosage: UNK
  2. KEYTRUDA [Suspect]
     Active Substance: PEMBROLIZUMAB
     Indication: NON-SMALL CELL LUNG CANCER
     Dosage: 200 MILLIGRAM, Q3W
     Route: 041
     Dates: start: 20170329
  3. MEDROL [Concomitant]
     Active Substance: METHYLPREDNISOLONE
     Indication: DECREASED APPETITE
     Dosage: 24 MILLIGRAM, BID
     Route: 048
     Dates: end: 20170707

REACTIONS (1)
  - Malignant neoplasm progression [Fatal]
